FAERS Safety Report 17082566 (Version 1)
Quarter: 2019Q4

REPORT INFORMATION
  Report Type: Not Available
  Country: NL (occurrence: FR)
  Receive Date: 20191127
  Receipt Date: 20191127
  Transmission Date: 20200122
  Serious: Yes (Hospitalization)
  Sender: FDA-Public Use
  Company Number: FR-FRESENIUS KABI-FK201912832

PATIENT
  Age: 7 Year
  Sex: Male

DRUGS (2)
  1. SUCCINYLCHOLINE CHLORIDE. [Suspect]
     Active Substance: SUCCINYLCHOLINE CHLORIDE
     Indication: ANAESTHESIA
     Route: 042
     Dates: start: 201709, end: 201709
  2. PROPOFOL (MANUFACTURER UNKNOWN) [Suspect]
     Active Substance: PROPOFOL
     Indication: ANAESTHESIA
     Route: 042
     Dates: start: 201709, end: 201709

REACTIONS (1)
  - Anaphylactic reaction [Recovered/Resolved]

NARRATIVE: CASE EVENT DATE: 201709
